FAERS Safety Report 19053837 (Version 1)
Quarter: 2021Q1

REPORT INFORMATION
  Report Type: Spontaneous
  Country: FR (occurrence: FR)
  Receive Date: 20210325
  Receipt Date: 20210325
  Transmission Date: 20210420
  Serious: Yes (Life-Threatening)
  Sender: FDA-Public Use
  Company Number: FR-TEVA-2021-FR-1893034

PATIENT
  Age: 71 Year
  Sex: Female

DRUGS (4)
  1. BISOPROLOL (HEMIFUMARATE DE) [Suspect]
     Active Substance: BISOPROLOL FUMARATE
     Route: 048
  2. SIMVASTATINE ARROW 20 MG, COMPRIME PELLICULE SECABLE [Suspect]
     Active Substance: SIMVASTATIN
     Indication: HYPERCHOLESTEROLAEMIA
     Dosage: 20MG
     Route: 048
     Dates: start: 20190401
  3. LISINOPRIL DIHYDRATE [Suspect]
     Active Substance: LISINOPRIL
     Route: 048
  4. HYDROCHLOROTHIAZIDE. [Suspect]
     Active Substance: HYDROCHLOROTHIAZIDE
     Route: 048

REACTIONS (1)
  - Basal cell carcinoma [Recovered/Resolved]

NARRATIVE: CASE EVENT DATE: 20200512
